FAERS Safety Report 20535648 (Version 2)
Quarter: 2022Q3

REPORT INFORMATION
  Report Type: Spontaneous
  Country: US (occurrence: US)
  Receive Date: 20220302
  Receipt Date: 20220928
  Transmission Date: 20221027
  Serious: Yes (Other)
  Sender: FDA-Public Use
  Company Number: US-JNJFOC-20211120490

PATIENT
  Age: 53 Year
  Sex: Female

DRUGS (22)
  1. ELMIRON [Suspect]
     Active Substance: PENTOSAN POLYSULFATE SODIUM
     Indication: Cystitis interstitial
     Route: 048
     Dates: start: 2002, end: 2006
  2. PROPRANOLOL [Concomitant]
     Active Substance: PROPRANOLOL HYDROCHLORIDE
     Indication: Heart rate
     Dates: start: 2018
  3. GABAPENTIN [Concomitant]
     Active Substance: GABAPENTIN
     Indication: Fibromyalgia
     Dates: start: 2002
  4. TRAZODONE [Concomitant]
     Active Substance: TRAZODONE HYDROCHLORIDE
     Indication: Sleep disorder therapy
     Dates: start: 1990
  5. ONDANSETRON [Concomitant]
     Active Substance: ONDANSETRON
     Indication: Nausea
     Dates: start: 201701, end: 202001
  6. HYDROXYZINE PAMOATE [Concomitant]
     Active Substance: HYDROXYZINE PAMOATE
     Indication: Pruritus
     Dates: start: 200802, end: 202103
  7. FLEXERIL [Concomitant]
     Active Substance: CYCLOBENZAPRINE HYDROCHLORIDE
     Indication: Muscle spasms
     Dates: start: 200907, end: 201803
  8. FLUCONAZOLE [Concomitant]
     Active Substance: FLUCONAZOLE
     Indication: Fungal infection
     Dates: start: 201006, end: 202107
  9. FLUCONAZOLE [Concomitant]
     Active Substance: FLUCONAZOLE
     Indication: Fungal infection
  10. YUVAFEM [Concomitant]
     Active Substance: ESTRADIOL HEMIHYDRATE
     Indication: Menopause
     Dates: start: 200804, end: 202201
  11. VAGIFEM [Concomitant]
     Active Substance: ESTRADIOL
     Indication: Menopause
     Dates: start: 200804, end: 202201
  12. ACTIVELLA [Concomitant]
     Active Substance: ESTRADIOL\NORETHINDRONE ACETATE
     Indication: Menopause
     Dates: start: 200804, end: 202201
  13. PROMETHAZINE [Concomitant]
     Active Substance: PROMETHAZINE HYDROCHLORIDE
     Indication: Nausea
     Dates: start: 201804, end: 201811
  14. ZALEPLON [Concomitant]
     Active Substance: ZALEPLON
     Indication: Insomnia
     Dates: start: 201404, end: 201907
  15. SF 5000 PLUS [Concomitant]
     Active Substance: SODIUM FLUORIDE
     Indication: Dental caries
     Route: 004
     Dates: start: 200806, end: 201904
  16. SODIUM CHLORIDE [Concomitant]
     Active Substance: SODIUM CHLORIDE
     Indication: Bladder irritation
     Dates: start: 201803, end: 201809
  17. VICODIN [Concomitant]
     Active Substance: ACETAMINOPHEN\HYDROCODONE BITARTRATE
     Indication: Analgesic therapy
     Dates: start: 2002, end: 2018
  18. MYRBETRIQ [Concomitant]
     Active Substance: MIRABEGRON
     Indication: Urinary incontinence
     Dates: start: 2002, end: 2018
  19. HYDROXYZINE [Concomitant]
     Active Substance: HYDROXYZINE HYDROCHLORIDE
     Indication: Pruritus
     Dates: start: 2002, end: 2018
  20. LORAZEPAM [Concomitant]
     Active Substance: LORAZEPAM
     Indication: Anxiety
     Dates: start: 201006, end: 202104
  21. DULOXETINE [Concomitant]
     Active Substance: DULOXETINE
     Indication: Depression
     Dates: start: 2009
  22. DULOXETINE [Concomitant]
     Active Substance: DULOXETINE
     Indication: Anxiety

REACTIONS (2)
  - Dry age-related macular degeneration [Not Recovered/Not Resolved]
  - Toxicity to various agents [Unknown]

NARRATIVE: CASE EVENT DATE: 20071001
